FAERS Safety Report 16408836 (Version 2)
Quarter: 2019Q2

REPORT INFORMATION
  Report Type: Spontaneous
  Country: CN (occurrence: CN)
  Receive Date: 20190610
  Receipt Date: 20190614
  Transmission Date: 20190711
  Serious: Yes (Death, Other)
  Sender: FDA-Public Use
  Company Number: CN-ROCHE-2323480

PATIENT
  Age: 47 Year
  Sex: Female

DRUGS (20)
  1. BEVACIZUMAB. [Suspect]
     Active Substance: BEVACIZUMAB
     Indication: ADENOCARCINOMA OF COLON
     Dosage: DAY1
     Route: 041
     Dates: start: 20140913, end: 20150424
  2. 5-FLUOROURACIL [FLUOROURACIL] [Suspect]
     Active Substance: FLUOROURACIL
     Indication: ADENOCARCINOMA OF COLON
     Dosage: 400 MG/M2 ,D1,THEN 1200 MG/M2/DAY* 2 DAY 3 DAYS
     Route: 041
     Dates: start: 20140913, end: 20150424
  3. BEVACIZUMAB. [Suspect]
     Active Substance: BEVACIZUMAB
     Dosage: DAY1
     Route: 041
     Dates: start: 20150509, end: 20150811
  4. BEVACIZUMAB. [Suspect]
     Active Substance: BEVACIZUMAB
     Dosage: DAY1
     Route: 042
     Dates: start: 20151208, end: 20160229
  5. IRINOTECAN [Suspect]
     Active Substance: IRINOTECAN
     Dosage: DAY1
     Route: 041
     Dates: start: 20160326, end: 20160414
  6. CALCIUM FOLINATE [Suspect]
     Active Substance: LEUCOVORIN CALCIUM
     Indication: ADENOCARCINOMA OF COLON
     Dosage: DAY1
     Route: 041
     Dates: start: 20140913, end: 20150424
  7. APATINIB [Concomitant]
     Active Substance: APATINIB
     Indication: ADENOCARCINOMA OF COLON
     Dosage: 500 MG/250MG
     Route: 048
     Dates: start: 20170518, end: 20171114
  8. OXALIPLATIN. [Suspect]
     Active Substance: OXALIPLATIN
     Dosage: DAY1
     Route: 041
     Dates: start: 20150907, end: 20151124
  9. CALCIUM FOLINATE [Suspect]
     Active Substance: LEUCOVORIN CALCIUM
     Dosage: DAY1
     Route: 041
     Dates: start: 20160326, end: 20160414
  10. 5-FLUOROURACIL [FLUOROURACIL] [Suspect]
     Active Substance: FLUOROURACIL
     Dosage: 400 MG/M2, D1,THEN 1200 MG/M2  SEVERAL DAYS
     Route: 041
     Dates: start: 20151208, end: 20160229
  11. 5-FLUOROURACIL [FLUOROURACIL] [Suspect]
     Active Substance: FLUOROURACIL
     Dosage: 400 MG/M2 D1, 1200 MG/M2/DAY* 2 DAYS, 3 DAYS
     Route: 041
     Dates: start: 20160326, end: 20160414
  12. CALCIUM LEVOFOLINATE [Suspect]
     Active Substance: LEVOLEUCOVORIN CALCIUM
     Indication: ADENOCARCINOMA OF COLON
     Dosage: DAY1
     Route: 041
     Dates: start: 20151208, end: 20160229
  13. BEVACIZUMAB. [Suspect]
     Active Substance: BEVACIZUMAB
     Dosage: DAY1
     Route: 041
     Dates: start: 20150907, end: 20151124
  14. 5-FLUOROURACIL [FLUOROURACIL] [Suspect]
     Active Substance: FLUOROURACIL
     Dosage: 400 MG/M2 ,D1,THEN 1200 MG/M2/DAY* 2 DAY 3 DAYS
     Route: 041
     Dates: start: 20150907, end: 20151124
  15. OXALIPLATIN. [Suspect]
     Active Substance: OXALIPLATIN
     Indication: ADENOCARCINOMA OF COLON
     Dosage: DAY1
     Route: 041
     Dates: start: 20140228, end: 20140820
  16. 5-FLUOROURACIL [FLUOROURACIL] [Suspect]
     Active Substance: FLUOROURACIL
     Dosage: 400 MG/M2 D1, 1200 MG/M2/DAY* 2 DAYS, 3 DAYS
     Route: 041
     Dates: start: 20161030, end: 20170501
  17. XELODA [Suspect]
     Active Substance: CAPECITABINE
     Indication: ADENOCARCINOMA OF COLON
     Dosage: ONCE PER 3 WEEKS
     Route: 048
     Dates: start: 20140228, end: 20140820
  18. CALCIUM FOLINATE [Suspect]
     Active Substance: LEUCOVORIN CALCIUM
     Dosage: DAY1
     Route: 041
     Dates: start: 20150907, end: 20151124
  19. IRINOTECAN [Suspect]
     Active Substance: IRINOTECAN
     Indication: ADENOCARCINOMA OF COLON
     Dosage: DAY1
     Route: 041
     Dates: start: 20140913, end: 20150424
  20. REGORAFENIB. [Concomitant]
     Active Substance: REGORAFENIB
     Indication: ADENOCARCINOMA OF COLON
     Route: 048
     Dates: start: 201802, end: 20180312

REACTIONS (9)
  - Diarrhoea [Unknown]
  - Bone marrow failure [Unknown]
  - Neurotoxicity [Unknown]
  - Jaundice cholestatic [Fatal]
  - Asthenia [Unknown]
  - Gastrointestinal disorder [Unknown]
  - Palmar-plantar erythrodysaesthesia syndrome [Unknown]
  - Hypertension [Unknown]
  - Proteinuria [Unknown]
